FAERS Safety Report 19494747 (Version 1)
Quarter: 2021Q3

REPORT INFORMATION
  Report Type: Spontaneous
  Country: US (occurrence: US)
  Receive Date: 20210705
  Receipt Date: 20210705
  Transmission Date: 20211014
  Serious: No
  Sender: FDA-Public Use
  Company Number: US-GLAXOSMITHKLINE-USCH2021042749

PATIENT
  Sex: Female

DRUGS (1)
  1. ADVIL MIGRAINE [Suspect]
     Active Substance: IBUPROFEN
     Indication: HEADACHE
     Dosage: UNK
     Dates: start: 20210630, end: 20210701

REACTIONS (3)
  - Product use in unapproved indication [Unknown]
  - Incorrect dose administered [Unknown]
  - Drug effective for unapproved indication [Unknown]
